FAERS Safety Report 20429629 (Version 1)
Quarter: 2022Q1

REPORT INFORMATION
  Report Type: Report from Study
  Country: FR (occurrence: FR)
  Receive Date: 20220204
  Receipt Date: 20220204
  Transmission Date: 20220423
  Serious: Yes (Life-Threatening, Hospitalization, Other)
  Sender: FDA-Public Use
  Company Number: FR-SERVIER-S19007344

PATIENT

DRUGS (21)
  1. PEGASPARGASE [Suspect]
     Active Substance: PEGASPARGASE
     Indication: Acute lymphocytic leukaemia
     Dosage: 3775 IU, ON D12 AND D26
     Route: 042
     Dates: start: 20190315, end: 20190329
  2. PEGASPARGASE [Suspect]
     Active Substance: PEGASPARGASE
     Dosage: 3675 IU, QD, D15, D43
     Route: 042
     Dates: start: 20190522, end: 20190621
  3. METHOTREXATE [Suspect]
     Active Substance: METHOTREXATE
     Indication: Acute lymphocytic leukaemia
     Dosage: 15 MG, ON DAYS 1, 4, 9, 13 AND 24
     Route: 037
     Dates: start: 20190304, end: 20190327
  4. METHOTREXATE [Suspect]
     Active Substance: METHOTREXATE
     Dosage: 15 MG, ON D3, D16, D31, D46
     Route: 037
     Dates: start: 20190510, end: 20190614
  5. CYTARABINE [Suspect]
     Active Substance: CYTARABINE
     Indication: Acute lymphocytic leukaemia
     Dosage: 30 MG, ON DAYS 1, 4, 9, 13 AND 24
     Route: 037
     Dates: start: 20190307, end: 20190327
  6. CYTARABINE [Suspect]
     Active Substance: CYTARABINE
     Dosage: 110 MG, ON D3 TO D6, D10 TO D13, D31 TO D34, D38 TO [CUT TERM]
     Route: 042
     Dates: start: 20190510, end: 20190620
  7. CYTARABINE [Suspect]
     Active Substance: CYTARABINE
     Dosage: 30 MG, ON D3, D16, D31, D46
     Route: 037
     Dates: start: 20190510, end: 20190624
  8. HYDROCORTISONE [Suspect]
     Active Substance: HYDROCORTISONE
     Indication: Acute lymphocytic leukaemia
     Dosage: 15 MG, UNKNOWN
     Route: 037
     Dates: start: 20190307, end: 20190327
  9. HYDROCORTISONE [Suspect]
     Active Substance: HYDROCORTISONE
     Dosage: 15 MG, ON DAYS 3, 16, 31 AND 46
     Route: 037
     Dates: start: 20190510, end: 20190624
  10. VINCRISTINE [Suspect]
     Active Substance: VINCRISTINE
     Indication: Acute lymphocytic leukaemia
     Dosage: 2 MG, ON DAYS 8, 15, 22 AND 29
     Route: 042
     Dates: start: 20190311, end: 20190401
  11. VINCRISTINE [Suspect]
     Active Substance: VINCRISTINE
     Dosage: 2 MG, ON D15, D22, D43, D50
     Route: 042
     Dates: start: 20190522, end: 20190628
  12. CYCLOPHOSPHAMIDE [Suspect]
     Active Substance: CYCLOPHOSPHAMIDE
     Indication: Acute lymphocytic leukaemia
     Dosage: 1470 MG, ON D1, D29
     Route: 042
     Dates: start: 20190508, end: 20190607
  13. MERCAPTOPURINE [Suspect]
     Active Substance: MERCAPTOPURINE
     Indication: Acute lymphocytic leukaemia
     Dosage: 41 MG, ON D1 TO D14, D29 TO D42
     Route: 048
     Dates: start: 20190508, end: 20190620
  14. PRIMPERAN [Suspect]
     Active Substance: METOCLOPRAMIDE HYDROCHLORIDE
     Indication: Product used for unknown indication
     Dosage: UNK
     Route: 065
  15. TN UNSPECIFIED [Concomitant]
     Indication: Acute lymphocytic leukaemia
     Dosage: 90.6 MG, ON DAYS 1-7 AND 8-28
     Route: 048
     Dates: start: 20190304
  16. TN UNSPECIFIED [Concomitant]
     Indication: Acute lymphocytic leukaemia
     Dosage: 45 MG, ON DAYS 8, 15, 22 AND 29
     Route: 042
     Dates: start: 20190311, end: 20190401
  17. INNOHEP [Concomitant]
     Active Substance: TINZAPARIN SODIUM
     Indication: Thrombosis
     Dosage: 9000 IU, QD
     Route: 042
     Dates: start: 20190429
  18. PIPERACILLIN SODIUM\TAZOBACTAM SODIUM [Concomitant]
     Active Substance: PIPERACILLIN SODIUM\TAZOBACTAM SODIUM
     Indication: Anti-infective therapy
     Dosage: 1470 MG, QD
     Route: 042
     Dates: start: 20190626
  19. CANCIDAS [Concomitant]
     Active Substance: CASPOFUNGIN ACETATE
     Indication: Anti-infective therapy
     Dosage: 50 MG, QD
     Route: 042
     Dates: start: 20190626
  20. TN UNSPECIFIED [Concomitant]
     Indication: Anti-infective therapy
     Dosage: 2000 MG, QD
     Route: 042
     Dates: start: 20190629
  21. VALACYCLOVIR HYDROCHLORIDE [Concomitant]
     Active Substance: VALACYCLOVIR HYDROCHLORIDE
     Indication: Anti-infective therapy
     Dosage: 400 MG, QD
     Route: 048
     Dates: start: 20190304

REACTIONS (5)
  - Confusional state [Unknown]
  - Seizure [Unknown]
  - Streptococcal sepsis [Not Recovered/Not Resolved]
  - Febrile bone marrow aplasia [Not Recovered/Not Resolved]
  - Hyperbilirubinaemia [Recovered/Resolved]

NARRATIVE: CASE EVENT DATE: 20190626
